FAERS Safety Report 23212839 (Version 2)
Quarter: 2025Q2

REPORT INFORMATION
  Report Type: Spontaneous
  Country: AU (occurrence: AU)
  Receive Date: 20231121
  Receipt Date: 20250624
  Transmission Date: 20250716
  Serious: Yes (Death)
  Sender: ORGANON
  Company Number: AU-ORGANON-O2311AUS002120

PATIENT
  Age: 51 Year
  Sex: Female

DRUGS (5)
  1. MIRTAZAPINE [Suspect]
     Active Substance: MIRTAZAPINE
  2. ACETAMINOPHEN [Suspect]
     Active Substance: ACETAMINOPHEN
  3. FLUNITRAZEPAM [Suspect]
     Active Substance: FLUNITRAZEPAM
     Route: 048
  4. CODEINE [Suspect]
     Active Substance: CODEINE
  5. MORPHINE [Suspect]
     Active Substance: MORPHINE

REACTIONS (1)
  - Toxicity to various agents [Fatal]

NARRATIVE: CASE EVENT DATE: 20180805
